FAERS Safety Report 10248018 (Version 4)
Quarter: 2014Q3

REPORT INFORMATION
  Report Type: Report from Study
  Country: US (occurrence: US)
  Receive Date: 20140619
  Receipt Date: 20140820
  Transmission Date: 20150326
  Serious: Yes (Hospitalization)
  Sender: FDA-Public Use
  Company Number: US-ACTELION-A-NJ2014-100525

PATIENT
  Age: 80 Year
  Sex: Female

DRUGS (9)
  1. SILDENAFIL [Concomitant]
     Active Substance: SILDENAFIL
  2. TOPROL XL [Concomitant]
     Active Substance: METOPROLOL SUCCINATE
  3. VENTAVIS [Suspect]
     Active Substance: ILOPROST
     Dosage: 2.5 MCG, 6-9X/DAILY
     Route: 055
  4. OXYGEN. [Concomitant]
     Active Substance: OXYGEN
  5. LASIX [Concomitant]
     Active Substance: FUROSEMIDE
  6. VENTAVIS [Suspect]
     Active Substance: ILOPROST
     Indication: PULMONARY ARTERIAL HYPERTENSION
     Dosage: 2.5 MCG, 6-9X/DAILY
     Route: 055
  7. VENTAVIS [Suspect]
     Active Substance: ILOPROST
     Dosage: 5 MCG  6-9X/DAILY
     Route: 055
  8. ALDACTONE [Concomitant]
     Active Substance: SPIRONOLACTONE
  9. MICADERM [Concomitant]

REACTIONS (4)
  - Cervical vertebral fracture [Recovering/Resolving]
  - Drug dose omission [Unknown]
  - Fall [Recovering/Resolving]
  - Loss of consciousness [Recovering/Resolving]

NARRATIVE: CASE EVENT DATE: 20140422
